FAERS Safety Report 4974826-X (Version None)
Quarter: 2006Q1

REPORT INFORMATION
  Report Type: 
  Country: None (occurrence: None)
  Receive Date: 20060227
  Receipt Date: 20060105
  Transmission Date: 20060701
  Serious: No
  Sender: FDA-Public Use
  Company Number: PHEH2006US00607

PATIENT
  Age: 65 Year
  Sex: Female

DRUGS (1)
  1. ENABLEX [Suspect]
     Indication: STRESS INCONTINENCE
     Dosage: 7.5 MG QD
     Dates: start: 20060102, end: 20060103

REACTIONS (2)
  - DRY THROAT [None]
  - VISION BLURRED [None]
